FAERS Safety Report 9921587 (Version 1)
Quarter: 2014Q1

REPORT INFORMATION
  Report Type: Spontaneous
  Country: US (occurrence: None)
  Receive Date: 20140221
  Receipt Date: 20140221
  Transmission Date: 20141002
  Serious: Yes (Hospitalization)
  Sender: FDA-Public Use
  Company Number: None

PATIENT
  Age: 73 Year
  Sex: Male
  Weight: 113.4 kg

DRUGS (19)
  1. RANIBIZUMAB [Suspect]
     Indication: DIABETIC RETINAL OEDEMA
     Dosage: MONTHLY INTRAVITREAL.
     Dates: start: 20140116
  2. TOPROL XL [Concomitant]
  3. LISINOPRIL [Concomitant]
  4. CELEXA [Concomitant]
  5. ASPIRIN [Concomitant]
  6. NOVOLOG [Concomitant]
  7. AMLODIPINE [Concomitant]
  8. NITROGLYCERIN [Concomitant]
  9. CALCIUM ACETATE [Concomitant]
  10. LASIX [Concomitant]
  11. GENERIC MULTIVITAMIN [Concomitant]
  12. MELATONIN [Concomitant]
  13. REMERON [Concomitant]
  14. ATIVAN [Concomitant]
  15. CALCITROL [Concomitant]
  16. OMEPRAZOLE [Concomitant]
  17. CLONIDINE HCL [Concomitant]
  18. OMEGA 3 [Concomitant]
  19. PLAVIX [Concomitant]

REACTIONS (2)
  - Pain in extremity [None]
  - Myocardial infarction [None]
